FAERS Safety Report 13442088 (Version 1)
Quarter: 2017Q2

REPORT INFORMATION
  Report Type: Spontaneous
  Country: CA (occurrence: CA)
  Receive Date: 20170414
  Receipt Date: 20170414
  Transmission Date: 20170830
  Serious: Yes (Other)
  Sender: FDA-Public Use
  Company Number: CA-BION-006179

PATIENT
  Age: 7 Year
  Sex: Male
  Weight: 30 kg

DRUGS (1)
  1. VALPROIC ACID UNKNOWN PRODUCT [Suspect]
     Active Substance: VALPROIC ACID
     Indication: PETIT MAL EPILEPSY
     Dosage: RECENTLY INCREASED FROM 750MG TO 1 GRAM

REACTIONS (3)
  - Parotid gland enlargement [Recovered/Resolved]
  - Submandibular mass [Recovered/Resolved]
  - Lacrimal gland enlargement [Recovered/Resolved]
